FAERS Safety Report 10236315 (Version 1)
Quarter: 2014Q2

REPORT INFORMATION
  Report Type: Spontaneous
  Country: US (occurrence: None)
  Receive Date: 20140612
  Receipt Date: 20140612
  Transmission Date: 20141212
  Serious: Yes (Other)
  Sender: FDA-Public Use
  Company Number: None

PATIENT
  Age: 66 Year
  Sex: Female
  Weight: 72.12 kg

DRUGS (6)
  1. RECLAST [Suspect]
     Indication: OSTEOPOROSIS
     Dosage: 5 MG  YEARLY  INTRAVENOUS
     Route: 042
     Dates: start: 20140604, end: 20140604
  2. ANASTROZOLE [Concomitant]
  3. LORAZEPAM [Concomitant]
  4. MULTIVITAMIN [Concomitant]
  5. ZANTAC [Concomitant]
  6. VITAMIN B COMPLEX [Concomitant]

REACTIONS (1)
  - Eye pain [None]
